FAERS Safety Report 4769897-X (Version None)
Quarter: 2005Q3

REPORT INFORMATION
  Report Type: 
  Country: None (occurrence: None)
  Receive Date: 20050912
  Receipt Date: 20050201
  Transmission Date: 20060218
  Serious: Yes (Hospitalization)
  Sender: FDA-Public Use
  Company Number: US014390

PATIENT
  Age: 68 Year
  Sex: Female

DRUGS (1)
  1. GABITRIL [Suspect]
     Indication: RADICULOPATHY
     Dosage: 4 MG QD ORAL
     Route: 048
     Dates: start: 20040101

REACTIONS (1)
  - ASTHMA [None]
